FAERS Safety Report 7590767-6 (Version None)
Quarter: 2011Q3

REPORT INFORMATION
  Report Type: 
  Country: None (occurrence: None)
  Receive Date: 20110705
  Receipt Date: 20110621
  Transmission Date: 20111222
  Serious: Yes (Other)
  Sender: FDA-Public Use
  Company Number: PHHY2011PL40486

PATIENT
  Sex: Female
  Weight: 52 kg

DRUGS (7)
  1. EXELON [Suspect]
     Indication: DEMENTIA
     Dosage: 4.6 MG/24 HR
     Route: 062
     Dates: start: 20101216
  2. TORENDO-Q-TAB [Concomitant]
  3. DIURESIN SR [Concomitant]
     Indication: OEDEMA
     Dosage: 1.5 MG, BID
     Route: 048
     Dates: start: 20110331
  4. DIURESIN SR [Concomitant]
     Indication: CARDIOVASCULAR INSUFFICIENCY
  5. SPIRONOL [Concomitant]
     Indication: OEDEMA
     Dosage: 25 MG, BID
     Route: 048
     Dates: start: 20110331
  6. SPIRONOL [Concomitant]
     Indication: CARDIOVASCULAR INSUFFICIENCY
  7. BEMECOR [Concomitant]
     Dosage: 100 UG/ 24 HR
     Route: 048
     Dates: start: 20110331

REACTIONS (2)
  - PULMONARY OEDEMA [None]
  - OEDEMA [None]
